FAERS Safety Report 16191155 (Version 3)
Quarter: 2021Q3

REPORT INFORMATION
  Report Type: Spontaneous
  Country: JP (occurrence: JP)
  Receive Date: 20190412
  Receipt Date: 20210906
  Transmission Date: 20211014
  Serious: Yes (Other)
  Sender: FDA-Public Use
  Company Number: JP-ROCHE-2302770

PATIENT
  Age: 73 Year
  Sex: Female

DRUGS (4)
  1. AFLIBERCEPT [Concomitant]
     Active Substance: AFLIBERCEPT
     Route: 031
     Dates: start: 20160203
  2. LUCENTIS [Suspect]
     Active Substance: RANIBIZUMAB
     Indication: AGE-RELATED MACULAR DEGENERATION
     Dosage: UNK
     Route: 050
  3. AFLIBERCEPT [Concomitant]
     Active Substance: AFLIBERCEPT
     Indication: AGE-RELATED MACULAR DEGENERATION
     Route: 031
  4. AFLIBERCEPT [Concomitant]
     Active Substance: AFLIBERCEPT
     Route: 031
     Dates: start: 20160106

REACTIONS (3)
  - Subretinal haematoma [Unknown]
  - Retinal degeneration [Unknown]
  - Macular scar [Unknown]
